FAERS Safety Report 4301397-3 (Version None)
Quarter: 2004Q1

REPORT INFORMATION
  Report Type: 
  Country: None (occurrence: None)
  Receive Date: 20040223
  Receipt Date: 20031107
  Transmission Date: 20041129
  Serious: No
  Sender: FDA-Public Use
  Company Number: US-GLAXOSMITHKLINE-A0438822A

PATIENT
  Age: 62 Year
  Sex: Male
  Weight: 70.7 kg

DRUGS (10)
  1. NAVELBINE [Suspect]
     Indication: PROSTATE CANCER
     Dosage: 25MGM2 CYCLIC
     Route: 042
     Dates: start: 20031009
  2. PRILOSEC [Concomitant]
  3. ZOCOR [Concomitant]
  4. PROZAC [Concomitant]
  5. HYDROCODONE [Concomitant]
  6. PROMETHAZINE [Concomitant]
  7. METOPROLOL SUCCINATE [Concomitant]
  8. LISINOPRIL [Concomitant]
  9. ZOMETA [Concomitant]
  10. LUPRON [Concomitant]

REACTIONS (1)
  - HEART RATE INCREASED [None]
